FAERS Safety Report 5140875-4 (Version None)
Quarter: 2006Q4

REPORT INFORMATION
  Report Type: 
  Country: None (occurrence: None)
  Receive Date: 20060901
  Receipt Date: 20060705
  Transmission Date: 20070319
  Serious: No
  Sender: FDA-Public Use
  Company Number: 2006MP000857

PATIENT
  Age: 63 Year
  Sex: Female
  Weight: 47.1741 kg

DRUGS (2)
  1. DACOGEN [Suspect]
     Indication: ACUTE MYELOID LEUKAEMIA
     Dosage: QD X5DQ28D;IV
     Route: 042
     Dates: start: 20060623, end: 20060627
  2. CIPRO /00697201/ [Concomitant]

REACTIONS (2)
  - DIARRHOEA [None]
  - OFF LABEL USE [None]
